FAERS Safety Report 17177824 (Version 7)
Quarter: 2020Q3

REPORT INFORMATION
  Report Type: Spontaneous
  Country: FR (occurrence: FR)
  Receive Date: 20191219
  Receipt Date: 20200923
  Transmission Date: 20201102
  Serious: Yes (Hospitalization, Disabling, Congenital Anomaly, Other)
  Sender: FDA-Public Use
  Company Number: FR-ADVANZ PHARMA-MAPI_00012144

PATIENT

DRUGS (3)
  1. KEPPRA [Suspect]
     Active Substance: LEVETIRACETAM
     Indication: FOETAL EXPOSURE DURING PREGNANCY
     Dosage: 1500 MG, BID (12 HOURS)
     Route: 064
     Dates: start: 20140627, end: 20150302
  2. ZONEGRAN [Suspect]
     Active Substance: ZONISAMIDE
     Indication: FOETAL EXPOSURE DURING PREGNANCY
     Dosage: 50 MG, BID
     Route: 064
     Dates: start: 20140627, end: 20150302
  3. URBANYL [Suspect]
     Active Substance: CLOBAZAM
     Indication: FOETAL EXPOSURE DURING PREGNANCY
     Dosage: 15 MG, QD
     Route: 064
     Dates: start: 20140627, end: 20150302

REACTIONS (13)
  - Dysmorphism [Not Recovered/Not Resolved]
  - Foetal anticonvulsant syndrome [Not Recovered/Not Resolved]
  - Motor developmental delay [Not Recovered/Not Resolved]
  - Aggression [Not Recovered/Not Resolved]
  - Weight decreased [Unknown]
  - Fatigue [Not Recovered/Not Resolved]
  - Foetal exposure during pregnancy [Unknown]
  - Nasopharyngitis [Unknown]
  - Macrocephaly [Not Recovered/Not Resolved]
  - Ear infection [Unknown]
  - Autism spectrum disorder [Not Recovered/Not Resolved]
  - Congenital cutis laxa [Unknown]
  - Epilepsy [Not Recovered/Not Resolved]

NARRATIVE: CASE EVENT DATE: 20150302
